FAERS Safety Report 13928501 (Version 1)
Quarter: 2017Q3

REPORT INFORMATION
  Report Type: Spontaneous
  Country: US (occurrence: None)
  Receive Date: 20170901
  Receipt Date: 20170901
  Transmission Date: 20171127
  Serious: No
  Sender: FDA-Public Use
  Company Number: None

PATIENT

DRUGS (16)
  1. FERROUS SULFATE. [Concomitant]
     Active Substance: FERROUS SULFATE
  2. LURASIDONE (LATUDA) [Concomitant]
  3. METFORMIN (GLUCOPHAGE) [Concomitant]
  4. BENZOTROPINE (COGENTIN) [Concomitant]
  5. RISPERIDONE (RISPERDAL) [Concomitant]
  6. CLONAZEPAM (KLONOPIN) [Concomitant]
  7. ASPIRIN CHEWABLE TAB [Concomitant]
  8. MAGNESIUM OXIDE (MAG-OX) [Concomitant]
  9. POLYVINYL ALCOHOL (LIQUIFILM TEARS) [Concomitant]
  10. ACETAMINOPHEN (TYLENOL) [Concomitant]
  11. CARVEDILOL (COREG) [Concomitant]
  12. LOVENOX [Suspect]
     Active Substance: ENOXAPARIN SODIUM
  13. DIVALPROEX (DEPAKOTE) ER 500 MG SUN PHARMACEUTICALS [Concomitant]
  14. FUROSEMIDE (LASIX) [Concomitant]
  15. ATORVASTATIN (LIPITOR) [Concomitant]
  16. NICOTINE (NICODERM CQ) [Concomitant]

REACTIONS (1)
  - Skin disorder [None]

NARRATIVE: CASE EVENT DATE: 20170614
